FAERS Safety Report 8456802-8 (Version None)
Quarter: 2012Q2

REPORT INFORMATION
  Report Type: 
  Country: None (occurrence: None)
  Receive Date: 20120621
  Receipt Date: 20120608
  Transmission Date: 20120825
  Serious: Yes (Death)
  Sender: FDA-Public Use
  Company Number: US-MYLANLABS-2010S1011460

PATIENT
  Age: 50 Year
  Sex: Female
  Weight: 116.58 kg

DRUGS (14)
  1. LEXAPRO [Suspect]
  2. PLAVIX [Concomitant]
  3. IBUPROFEN [Concomitant]
     Dosage: EVERY 4-6 HOURS
  4. SYMBICORT [Concomitant]
     Route: 055
  5. FENTANYL-100 [Suspect]
     Indication: PAIN
     Dosage: CHANGE Q3D
     Route: 062
     Dates: end: 20080628
  6. DIPHENHYDRAMINE HCL [Suspect]
  7. LYRICA [Concomitant]
  8. METFORMIN HCL [Concomitant]
  9. NORTRIPTYLINE HYDROCHLORIDE [Suspect]
  10. SALONPAS /01386301/ [Concomitant]
  11. ADVAIR DISKUS 100/50 [Concomitant]
  12. DIAZEPAM [Concomitant]
     Indication: ANXIETY
     Dosage: EVERY 8 HOURS
  13. DIOVAN [Concomitant]
  14. NEXIUM [Concomitant]

REACTIONS (3)
  - OVERDOSE [None]
  - RESPIRATORY DEPRESSION [None]
  - TOXICITY TO VARIOUS AGENTS [None]
